FAERS Safety Report 7943285-7 (Version None)
Quarter: 2011Q4

REPORT INFORMATION
  Report Type: 
  Country: None (occurrence: None)
  Receive Date: 20111128
  Receipt Date: 20111123
  Transmission Date: 20120403
  Serious: No
  Sender: FDA-Public Use
  Company Number: US-PFIZER INC-2011287239

PATIENT
  Sex: Male
  Weight: 82 kg

DRUGS (3)
  1. TOPROL-XL [Concomitant]
     Dosage: UNK
  2. ALTACE [Concomitant]
     Dosage: UNK
  3. LIPITOR [Suspect]
     Indication: ARTERIAL OCCLUSIVE DISEASE
     Dosage: UNK, 1X/DAY
     Route: 048
     Dates: start: 19990101, end: 20110101

REACTIONS (1)
  - BLOOD CHOLESTEROL INCREASED [None]
